FAERS Safety Report 4302437-8 (Version None)
Quarter: 2004Q1

REPORT INFORMATION
  Report Type: 
  Country: None (occurrence: None)
  Receive Date: 20040223
  Receipt Date: 20040216
  Transmission Date: 20041129
  Serious: Yes (Life-Threatening)
  Sender: FDA-Public Use
  Company Number: 04-02-0245

PATIENT
  Age: 91 Year
  Sex: Female

DRUGS (6)
  1. CEPHALEXIN [Suspect]
     Indication: URINARY TRACT INFECTION
     Dosage: ORAL
     Route: 048
     Dates: start: 20040109, end: 20040112
  2. WARFARIN SODIUM [Concomitant]
  3. FRUSEMIDE [Concomitant]
  4. CITALOPRAM [Concomitant]
  5. VERAPAMIL [Concomitant]
  6. RISPERIDONE [Concomitant]

REACTIONS (1)
  - HEPATIC ENCEPHALOPATHY [None]
